FAERS Safety Report 15150227 (Version 1)
Quarter: 2018Q3

REPORT INFORMATION
  Report Type: Spontaneous
  Country: GB (occurrence: GB)
  Receive Date: 20180716
  Receipt Date: 20180716
  Transmission Date: 20181010
  Serious: Yes (Hospitalization)
  Sender: FDA-Public Use
  Company Number: GB-US WORLDMEDS, LLC-STA_00017269

PATIENT
  Sex: Female

DRUGS (6)
  1. APOMORPHINE HYDROCHLORIDE [Suspect]
     Active Substance: APOMORPHINE HYDROCHLORIDE
     Indication: PARKINSON^S DISEASE
     Dosage: 6.5MG/HR OVER 24 HRS
  2. MADOPAR CR [Concomitant]
     Active Substance: BENSERAZIDE HYDROCHLORIDE\LEVODOPA
     Indication: PARKINSON^S DISEASE
  3. ARIMIDEX [Concomitant]
     Active Substance: ANASTROZOLE
     Indication: BREAST CANCER
  4. MADOPAR [Concomitant]
     Active Substance: BENSERAZIDE HYDROCHLORIDE\LEVODOPA
     Indication: PARKINSON^S DISEASE
  5. OMEPRAZOLE. [Concomitant]
     Active Substance: OMEPRAZOLE
     Indication: GASTROOESOPHAGEAL REFLUX DISEASE
  6. FUROSEMIDE. [Concomitant]
     Active Substance: FUROSEMIDE
     Indication: JOINT SWELLING
     Dosage: 20 MG

REACTIONS (4)
  - Overdose [Unknown]
  - Dopamine dysregulation syndrome [Unknown]
  - Dependence [Unknown]
  - Dyskinesia [Unknown]
